FAERS Safety Report 7383799-4 (Version None)
Quarter: 2011Q1

REPORT INFORMATION
  Report Type: 
  Country: None (occurrence: None)
  Receive Date: 20110322
  Receipt Date: 20110307
  Transmission Date: 20110831
  Serious: Yes (Other)
  Sender: FDA-Public Use
  Company Number: TPA2011A00985

PATIENT
  Age: 54 Year
  Sex: Female

DRUGS (1)
  1. DEXILANT [Suspect]
     Indication: GASTROOESOPHAGEAL REFLUX DISEASE
     Dosage: 60 MG, 1 IN 1 D, PER ORAL
     Route: 048

REACTIONS (3)
  - VAGINAL HAEMORRHAGE [None]
  - RASH [None]
  - BREAST ENLARGEMENT [None]
